FAERS Safety Report 24565003 (Version 2)
Quarter: 2024Q4

REPORT INFORMATION
  Report Type: Spontaneous
  Country: CZ (occurrence: CZ)
  Receive Date: 20241030
  Receipt Date: 20241210
  Transmission Date: 20250115
  Serious: Yes (Hospitalization, Other)
  Sender: BAUSCH AND LOMB
  Company Number: CZ-CZPHARMAP-OLIKLA20241008b_Lit

PATIENT
  Age: 60 Year
  Sex: Female

DRUGS (3)
  1. DEXAMETHASONE [Suspect]
     Active Substance: DEXAMETHASONE
     Indication: COVID-19 pneumonia
     Route: 065
  2. CLARITHROMYCIN [Suspect]
     Active Substance: CLARITHROMYCIN
     Indication: Evidence based treatment
     Route: 065
  3. AMOXICILLIN [Suspect]
     Active Substance: AMOXICILLIN
     Indication: Evidence based treatment
     Route: 065

REACTIONS (5)
  - Negativism [Recovered/Resolved]
  - Thinking abnormal [Recovered/Resolved]
  - Inappropriate affect [Recovered/Resolved]
  - Behaviour disorder [Recovered/Resolved]
  - Psychotic disorder [Recovered/Resolved]
